FAERS Safety Report 5743617-4 (Version None)
Quarter: 2008Q2

REPORT INFORMATION
  Report Type: 
  Country: None (occurrence: None)
  Receive Date: 20080520
  Receipt Date: 20080509
  Transmission Date: 20081010
  Serious: Yes (Other)
  Sender: FDA-Public Use
  Company Number: GB-BAYER-200710601BNE

PATIENT
  Age: 25 Year
  Sex: Male
  Weight: 93 kg

DRUGS (5)
  1. CIPROFLOXACIN HCL [Suspect]
     Indication: PYELONEPHRITIS
     Route: 048
     Dates: start: 20070423, end: 20070501
  2. CODEINE LINCTUS (NORSK) [Concomitant]
     Indication: COUGH
     Route: 048
     Dates: start: 20070219, end: 20070226
  3. OXYTETRACYCLINE [Concomitant]
     Indication: COUGH
     Route: 048
     Dates: start: 20070219, end: 20070226
  4. PEPPERMINT OIL [Concomitant]
     Indication: IRRITABLE BOWEL SYNDROME
     Route: 048
     Dates: start: 20070329, end: 20070429
  5. TRIMETHOPRIM [Concomitant]
     Indication: CYSTITIS
     Route: 048
     Dates: start: 20070421, end: 20070424

REACTIONS (4)
  - HEPATITIS [None]
  - INFECTIOUS MONONUCLEOSIS [None]
  - JAUNDICE [None]
  - PHARYNGOLARYNGEAL PAIN [None]
